FAERS Safety Report 4349794-4 (Version None)
Quarter: 2004Q2

REPORT INFORMATION
  Report Type: 
  Country: None (occurrence: None)
  Receive Date: 20040429
  Receipt Date: 20040420
  Transmission Date: 20050107
  Serious: Yes (Other)
  Sender: FDA-Public Use
  Company Number: DE-JNJFOC-20040404251

PATIENT
  Sex: Male
  Weight: 104 kg

DRUGS (1)
  1. ITRACOL 7 [Suspect]
     Indication: ONYCHOMYCOSIS
     Route: 049

REACTIONS (4)
  - OEDEMA PERIPHERAL [None]
  - PRURITUS [None]
  - THROMBOCYTOPENIA [None]
  - WEIGHT INCREASED [None]
